FAERS Safety Report 8452958-1 (Version None)
Quarter: 2012Q2

REPORT INFORMATION
  Report Type: 
  Country: None (occurrence: None)
  Receive Date: 20120620
  Receipt Date: 20120614
  Transmission Date: 20120825
  Serious: Yes (Other)
  Sender: FDA-Public Use
  Company Number: PHHY2012US051168

PATIENT
  Age: 10 Year
  Sex: Female

DRUGS (27)
  1. CYCLOPHOSPHAMIDE [Suspect]
     Dosage: 250 MG/M2, BID FOR 6 DOSES
  2. VINCRISTINE [Suspect]
     Dosage: 2 MG/M2, UNK
  3. METHOTREXATE [Suspect]
     Dosage: 1500 MG/M2, UNK
  4. DOXORUBICIN HCL [Suspect]
     Dosage: 30 MG/M2, UNK
  5. CYCLOPHOSPHAMIDE [Suspect]
     Dosage: 250 MG/M2, BID FOR 6 DOSES
  6. PREDNISOLONE [Suspect]
     Dosage: 60 MG/M2, FOR 5 DAYS, THEN TAPER OVER 3 DAYS
  7. HYDROCORTISONE [Suspect]
     Indication: BURKITT'S LYMPHOMA STAGE III
     Route: 037
  8. RITUXIMAB [Suspect]
     Indication: BURKITT'S LYMPHOMA STAGE III
     Dosage: EVERY 2-4 WEEKS FOR 5 TOTAL DOSES WITH CUMULATIVE DOSE OF 1875 MG/M2
  9. CYCLOPHOSPHAMIDE [Suspect]
     Indication: BURKITT'S LYMPHOMA STAGE III
     Dosage: 300 MG/M2, UNK
  10. VINCRISTINE [Suspect]
     Indication: BURKITT'S LYMPHOMA STAGE III
     Dosage: 1 MG/M2, UNK
  11. METHOTREXATE [Suspect]
     Indication: BURKITT'S LYMPHOMA STAGE III
     Route: 037
  12. HYDROCORTISONE [Suspect]
     Dosage: INTRATHECALLY TWICE
     Route: 037
  13. CYTARABINE [Suspect]
     Indication: BURKITT'S LYMPHOMA STAGE III
     Dosage: 100 MG/M2, FOR 5 DAYS
  14. METHOTREXATE [Suspect]
     Dosage: INTRATHECALLY TWICE
     Route: 037
  15. METHOTREXATE [Suspect]
     Dosage: INTRATHECALLY TWICE
     Route: 037
  16. METHOTREXATE [Suspect]
     Dosage: 1500 MG/M2, UNK
  17. HYDROCORTISONE [Suspect]
     Route: 037
  18. PREDNISOLONE [Suspect]
     Dosage: 60 MG/M2, FOR 5 DAYS THEN TAPER OVER 3 DAYS
  19. METHOTREXATE [Suspect]
     Dosage: 30000 MG/M2, UNK
  20. HYDROCORTISONE [Suspect]
     Dosage: INTRATHECALLY TWICE
     Route: 037
  21. RITUXIMAB [Suspect]
     Dosage: CUMULATIVE DOSE OF 1875 MG/M2
  22. VINCRISTINE [Suspect]
     Dosage: 1 MG/M2, UNK
  23. PREDNISOLONE [Suspect]
     Indication: BURKITT'S LYMPHOMA STAGE III
     Dosage: 60 MG/M2, PER DAY FOR 7 DAYS
  24. METHOTREXATE [Suspect]
     Route: 037
  25. HYDROCORTISONE [Suspect]
     Dosage: UNKNWON
  26. DOXORUBICIN HCL [Suspect]
     Indication: BURKITT'S LYMPHOMA STAGE III
     Dosage: 60 MG/M2, UNK
  27. CYTARABINE [Suspect]
     Dosage: UNKNOWN

REACTIONS (7)
  - ABDOMINAL COMPARTMENT SYNDROME [None]
  - SEPSIS [None]
  - PANCYTOPENIA [None]
  - HYPERTENSION [None]
  - RENAL FAILURE [None]
  - FEBRILE NEUTROPENIA [None]
  - SMALL INTESTINAL OBSTRUCTION [None]
